FAERS Safety Report 17042210 (Version 1)
Quarter: 2019Q4

REPORT INFORMATION
  Report Type: Spontaneous
  Country: JP (occurrence: JP)
  Receive Date: 20191118
  Receipt Date: 20191118
  Transmission Date: 20200122
  Serious: Yes (Other)
  Sender: FDA-Public Use
  Company Number: JP-TEVA-2019-JP-1138442

PATIENT
  Age: 71 Year
  Sex: Male

DRUGS (7)
  1. DENOSUMAB [Concomitant]
     Active Substance: DENOSUMAB
     Indication: METASTASES TO BONE
     Route: 065
  2. FLUTAMIDE. [Suspect]
     Active Substance: FLUTAMIDE
     Indication: PROSTATE CANCER METASTATIC
     Route: 065
  3. ETHINYLESTRADIOL [Suspect]
     Active Substance: ETHINYL ESTRADIOL
     Indication: PROSTATE CANCER METASTATIC
     Route: 065
  4. BICALUTAMIDE. [Suspect]
     Active Substance: BICALUTAMIDE
     Indication: PROSTATE CANCER METASTATIC
     Route: 065
  5. RADIUM-223 [Concomitant]
     Active Substance: RADIUM RA-223 DICHLORIDE
     Indication: METASTASES TO BONE
     Route: 065
  6. ENZALUTAMIDE [Suspect]
     Active Substance: ENZALUTAMIDE
     Indication: PROSTATE CANCER METASTATIC
     Route: 065
  7. ESTRAMUSTINE PHOSPHATE SODIUM HYDRATE [Suspect]
     Active Substance: ESTRAMUSTINE PHOSPHATE SODIUM
     Indication: PROSTATE CANCER METASTATIC
     Route: 065

REACTIONS (1)
  - Drug resistance [Unknown]
